FAERS Safety Report 6171308-7 (Version None)
Quarter: 2009Q2

REPORT INFORMATION
  Report Type: 
  Country: None (occurrence: None)
  Receive Date: 20090429
  Receipt Date: 20090423
  Transmission Date: 20091009
  Serious: Yes (Other)
  Sender: FDA-Public Use
  Company Number: CH-BAYER-200917642GPV

PATIENT
  Age: 51 Year
  Sex: Female
  Weight: 69 kg

DRUGS (1)
  1. MIRENA [Suspect]
     Indication: DRUG USE FOR UNKNOWN INDICATION
     Route: 015
     Dates: start: 20090226

REACTIONS (5)
  - ARTHRALGIA [None]
  - GENITAL HAEMORRHAGE [None]
  - GENITAL HERPES [None]
  - MUSCULOSKELETAL PAIN [None]
  - ORAL HERPES [None]
